FAERS Safety Report 7675813-3 (Version None)
Quarter: 2011Q3

REPORT INFORMATION
  Report Type: 
  Country: None (occurrence: None)
  Receive Date: 20110810
  Receipt Date: 20110801
  Transmission Date: 20111222
  Serious: Yes (Other)
  Sender: FDA-Public Use
  Company Number: CN-ASTRAZENECA-2011SE45573

PATIENT
  Age: 30 Year
  Sex: Male

DRUGS (3)
  1. LIDOCAINE [Suspect]
     Route: 008
  2. LIDOCAINE [Suspect]
     Route: 008
  3. LIDOCAINE [Suspect]
     Indication: LOCAL ANAESTHESIA
     Route: 008

REACTIONS (8)
  - DEPRESSION [None]
  - MUSCLE TIGHTNESS [None]
  - PHARYNGEAL OEDEMA [None]
  - OXYGEN SATURATION DECREASED [None]
  - LOSS OF CONSCIOUSNESS [None]
  - AGITATION [None]
  - BLOOD PRESSURE DECREASED [None]
  - HEART RATE INCREASED [None]
